FAERS Safety Report 7732367-0 (Version None)
Quarter: 2011Q3

REPORT INFORMATION
  Report Type: 
  Country: None (occurrence: None)
  Receive Date: 20110906
  Receipt Date: 20110825
  Transmission Date: 20111222
  Serious: Yes (Hospitalization)
  Sender: FDA-Public Use
  Company Number: US-ASTRAZENECA-2011SE41504

PATIENT
  Age: 51 Year
  Sex: Female

DRUGS (5)
  1. METOPROLOL [Concomitant]
     Indication: HYPERTENSION
     Dosage: 25 MG, TWO TIMES A DAY
     Route: 048
  2. SEROQUEL [Suspect]
     Indication: BIPOLAR I DISORDER
     Route: 048
     Dates: start: 20080101, end: 20110627
  3. SEROQUEL [Suspect]
     Route: 048
  4. SEROQUEL [Suspect]
     Route: 048
  5. LEXAPRO [Concomitant]
     Indication: DEPRESSION
     Route: 048

REACTIONS (16)
  - MIGRAINE [None]
  - ROAD TRAFFIC ACCIDENT [None]
  - HYPERHIDROSIS [None]
  - THERAPY CESSATION [None]
  - WRONG TECHNIQUE IN DRUG USAGE PROCESS [None]
  - DRUG DOSE OMISSION [None]
  - ANKLE FRACTURE [None]
  - DRUG WITHDRAWAL SYNDROME [None]
  - PALPITATIONS [None]
  - RIB FRACTURE [None]
  - CHILLS [None]
  - VOMITING [None]
  - SKELETAL INJURY [None]
  - INSOMNIA [None]
  - MALAISE [None]
  - DIARRHOEA [None]
